FAERS Safety Report 9277342 (Version 1)
Quarter: 2013Q2

REPORT INFORMATION
  Report Type: Spontaneous
  Country: US (occurrence: None)
  Receive Date: 20130503
  Receipt Date: 20130503
  Transmission Date: 20140414
  Serious: Yes (Other)
  Sender: FDA-Public Use
  Company Number: None

PATIENT
  Age: 1 Year
  Sex: Male

DRUGS (1)
  1. ACTHAR [Suspect]
     Indication: INFANTILE SPASMS
     Dosage: 0.4 CC BID X 7 D, O 18 CC .. C 6 D
     Dates: end: 20130212

REACTIONS (3)
  - Muscle spasms [None]
  - Disease recurrence [None]
  - Drug ineffective [None]
